FAERS Safety Report 13972192 (Version 1)
Quarter: 2017Q3

REPORT INFORMATION
  Report Type: Spontaneous
  Country: US (occurrence: US)
  Receive Date: 20170914
  Receipt Date: 20170914
  Transmission Date: 20171128
  Serious: No
  Sender: FDA-Public Use
  Company Number: US-ASTELLAS-2016US042096

PATIENT
  Age: 64 Year
  Sex: Male

DRUGS (2)
  1. XTANDI [Suspect]
     Active Substance: ENZALUTAMIDE
     Route: 048
     Dates: start: 20160915
  2. XTANDI [Suspect]
     Active Substance: ENZALUTAMIDE
     Indication: HORMONE-REFRACTORY PROSTATE CANCER
     Dosage: 160 MG, ONCE DAILY (EVERY NIGHT)
     Route: 048
     Dates: start: 20160124

REACTIONS (8)
  - Anaemia [Recovered/Resolved]
  - Product expiration date issue [Unknown]
  - Product counterfeit [Unknown]
  - Prostatic specific antigen increased [Unknown]
  - Product lot number issue [Unknown]
  - Fatigue [Not Recovered/Not Resolved]
  - Medication residue present [Unknown]
  - Weight increased [Unknown]

NARRATIVE: CASE EVENT DATE: 2016
